FAERS Safety Report 9398079 (Version 1)
Quarter: 2013Q3

REPORT INFORMATION
  Report Type: Spontaneous
  Country: FR (occurrence: FR)
  Receive Date: 20130712
  Receipt Date: 20130712
  Transmission Date: 20140515
  Serious: Yes (Death, Hospitalization)
  Sender: FDA-Public Use
  Company Number: PHHY2013FR073141

PATIENT
  Age: 55 Year
  Sex: Male

DRUGS (4)
  1. TACROLIMUS [Suspect]
     Indication: IMMUNOSUPPRESSION
  2. MYCOPHENOLATE MOFETIL [Suspect]
     Indication: IMMUNOSUPPRESSION
     Dosage: 1 G PER DAY
  3. PREDNISONE [Suspect]
     Indication: IMMUNOSUPPRESSION
     Dosage: 5 MG PER DAY
  4. ANTITHYMOCYTE IMMUNOGLOBULIN (RABBIT) [Suspect]
     Indication: IMMUNOSUPPRESSION

REACTIONS (17)
  - Death [Fatal]
  - Intracranial pressure increased [Unknown]
  - Coma [Unknown]
  - Fungal infection [Unknown]
  - Fatigue [Unknown]
  - Abdominal pain [Unknown]
  - Pyrexia [Unknown]
  - Confusional state [Unknown]
  - Crepitations [Unknown]
  - Ascites [Unknown]
  - Anaemia [Unknown]
  - Lymphopenia [Unknown]
  - Brain abscess [Unknown]
  - Brain oedema [Unknown]
  - Nodule [Unknown]
  - Lymphadenopathy [Unknown]
  - Abscess [Unknown]
